FAERS Safety Report 16806505 (Version 1)
Quarter: 2019Q3

REPORT INFORMATION
  Report Type: Spontaneous
  Country: DK (occurrence: DK)
  Receive Date: 20190913
  Receipt Date: 20190913
  Transmission Date: 20191005
  Serious: Yes (Hospitalization)
  Sender: FDA-Public Use
  Company Number: DK-MYLANLABS-2019M1084722

PATIENT
  Age: 71 Year
  Sex: Male

DRUGS (10)
  1. PARACETAMOL [Concomitant]
     Active Substance: ACETAMINOPHEN
     Indication: PAIN
     Dosage: STYRKE: 500MG
     Route: 048
     Dates: start: 20161206
  2. ZOLEDRONIC ACID [Suspect]
     Active Substance: ZOLEDRONIC ACID
     Indication: BONE DISORDER
     Dosage: STYRKE: 4 MG/100 ML
     Route: 042
     Dates: start: 201612, end: 20181129
  3. METOPROLOL TARTRATE. [Concomitant]
     Active Substance: METOPROLOL TARTRATE
     Indication: THROMBOSIS PROPHYLAXIS
     Dosage: STYRKE: 25MG
     Route: 048
     Dates: start: 20150323
  4. PANTOPRAZOLE [Concomitant]
     Active Substance: PANTOPRAZOLE
     Indication: GASTROOESOPHAGEAL REFLUX PROPHYLAXIS
     Dosage: STYRKE: 20MG
     Route: 048
     Dates: start: 20171113
  5. LOSARTAN. [Concomitant]
     Active Substance: LOSARTAN
     Indication: HYPERTENSION
     Dosage: STYRKE: 50MG
     Route: 048
     Dates: start: 20151113
  6. GLYTRIN                            /00003201/ [Concomitant]
     Indication: CHEST PAIN
     Dosage: STYRKE: 0,4MG/DOSIS DOSIS: 1PUST EFTER BEHOV UNDER TUNGEN VED SMERTER
     Route: 060
     Dates: start: 20160603
  7. HJERDYL [Concomitant]
     Active Substance: ASPIRIN
     Indication: THROMBOSIS PROPHYLAXIS
     Dosage: STYRKE: 75MG
     Route: 048
     Dates: start: 20170602
  8. CONTALGIN [Concomitant]
     Active Substance: MORPHINE SULFATE
     Indication: PAIN
     Dosage: STYRKE: 10MG
     Route: 048
     Dates: start: 20161206
  9. ZOPICLONE [Concomitant]
     Active Substance: ZOPICLONE
     Indication: INSOMNIA
     Dosage: STYRKE:
     Route: 048
     Dates: start: 20170602
  10. ATORVASTATIN [Concomitant]
     Active Substance: ATORVASTATIN
     Indication: CARDIOVASCULAR EVENT PROPHYLAXIS
     Dosage: STYRKE: 80MG
     Route: 048
     Dates: start: 20140527

REACTIONS (5)
  - Osteonecrosis of jaw [Not Recovered/Not Resolved]
  - Oral pain [Unknown]
  - Impaired healing [Unknown]
  - Exposed bone in jaw [Unknown]
  - Purulence [Unknown]

NARRATIVE: CASE EVENT DATE: 2018
